FAERS Safety Report 10423774 (Version 1)
Quarter: 2014Q3

REPORT INFORMATION
  Report Type: Spontaneous
  Country: US (occurrence: None)
  Receive Date: 20140722
  Receipt Date: 20140722
  Transmission Date: 20150326
  Serious: No
  Sender: FDA-Public Use
  Company Number: 163-10004-14061466

PATIENT
  Age: 80 Year
  Sex: Female
  Weight: 86.18 kg

DRUGS (10)
  1. HYDROCODONE (HYDROCODONE) [Concomitant]
     Active Substance: HYDROCODONE
  2. VITAMIN D3 [Concomitant]
     Active Substance: CHOLECALCIFEROL
  3. LISINOPRIL (LISINOPRIL) [Concomitant]
     Active Substance: LISINOPRIL
  4. OTEZLA [Suspect]
     Active Substance: APREMILAST
     Indication: PSORIATIC ARTHROPATHY
     Dosage: TEMPORARILY INTERRUPTED
     Route: 048
     Dates: end: 2014
  5. VENLAFAXINE (VENLAFACXINE) [Concomitant]
  6. LEVOTHYROXINE (LEVOTHYROXINE) [Concomitant]
     Active Substance: LEVOTHYROXINE
  7. BABY ASPIRIN (ACETYLSALICYLIC ACID) [Concomitant]
     Active Substance: ASPIRIN
  8. AMLODIPINE [Concomitant]
     Active Substance: AMLODIPINE BESYLATE
  9. FOLIC ACID (FOLIC ACID) [Concomitant]
     Active Substance: FOLIC ACID
  10. SIMVASTATIN (SIMVASTATIN) [Concomitant]
     Active Substance: SIMVASTATIN

REACTIONS (2)
  - Faeces discoloured [None]
  - Diarrhoea [None]

NARRATIVE: CASE EVENT DATE: 2014
